FAERS Safety Report 9887356 (Version 1)
Quarter: 2014Q1

REPORT INFORMATION
  Report Type: Spontaneous
  Country: US (occurrence: US)
  Receive Date: 20140211
  Receipt Date: 20140211
  Transmission Date: 20141002
  Serious: No
  Sender: FDA-Public Use
  Company Number: US-009507513-1402USA004647

PATIENT
  Age: 44 Year
  Sex: Male

DRUGS (3)
  1. ZETIA [Suspect]
     Indication: LIPIDS
     Dosage: 10 MG, QD
     Route: 048
     Dates: start: 201303, end: 2013
  2. ZETIA [Suspect]
     Dosage: 10 MG, QD
     Route: 048
     Dates: start: 20131216
  3. CRESTOR [Concomitant]

REACTIONS (5)
  - Blood triglycerides decreased [Unknown]
  - Alcohol use [Unknown]
  - Decreased appetite [Unknown]
  - Aspartate aminotransferase increased [Unknown]
  - Alanine aminotransferase increased [Unknown]
